FAERS Safety Report 8784736 (Version 1)
Quarter: 2012Q4

REPORT INFORMATION
  Report Type: Spontaneous
  Country: US (occurrence: None)
  Receive Date: 20120907
  Receipt Date: 20120907
  Transmission Date: 20130627
  Serious: Yes (Disabling)
  Sender: FDA-Public Use
  Company Number: None

PATIENT
  Age: 54 Year
  Sex: Male
  Weight: 86.18 kg

DRUGS (1)
  1. GADOLINIUM [Suspect]
     Indication: CARDIAC DISORDER

REACTIONS (3)
  - Chemical injury [None]
  - Nephrogenic systemic fibrosis [None]
  - Documented hypersensitivity to administered drug [None]
